FAERS Safety Report 6339300 (Version 11)
Quarter: 2013Q3

REPORT INFORMATION
  Report Type: Spontaneous
  Country: US (occurrence: US)
  Receive Date: 20070622
  Receipt Date: 20130703
  Transmission Date: 20140515
  Serious: Yes (Hospitalization, Other)
  Sender: FDA-Public Use
  Company Number: PHEH2007US08935

PATIENT
  Age: 62 Year
  Sex: Female

DRUGS (25)
  1. AREDIA [Suspect]
     Indication: PLASMA CELL MYELOMA
     Dosage: 90 MG, QMO
     Route: 042
  2. CAMPATH [Suspect]
     Dates: end: 20040927
  3. THALIDOMIDE [Suspect]
  4. MEVACOR [Concomitant]
     Indication: BLOOD CHOLESTEROL
  5. DARVOCET-N [Concomitant]
  6. TYLENOL [Concomitant]
  7. NEURONTIN [Concomitant]
  8. CHEMOTHERAPEUTICS NOS [Concomitant]
     Indication: NEOPLASM MALIGNANT
  9. PROCRIT                            /00909301/ [Concomitant]
  10. PERIDEX [Concomitant]
     Dosage: 10 CM3, BID
  11. MS CONTIN [Concomitant]
  12. PREDNISONE [Concomitant]
     Dosage: UNK UKN, QD
     Route: 048
  13. SOLU-MEDROL [Concomitant]
     Dosage: UNK UKN, QD
  14. ASPIRIN ^BAYER^ [Concomitant]
  15. CALCIUM [Concomitant]
  16. MAGNESIUM [Concomitant]
  17. AUGMENTIN [Concomitant]
  18. COD-LIVER OIL [Concomitant]
  19. LOVASTATIN [Concomitant]
  20. REVLIMID [Concomitant]
  21. MULTIVITE [Concomitant]
  22. ATIVAN [Concomitant]
  23. ACYCLOVIR [Concomitant]
  24. HYDRALAZINE [Concomitant]
  25. SCOPOLAMINE [Concomitant]

REACTIONS (95)
  - Osteonecrosis of jaw [Unknown]
  - Infection [Unknown]
  - Bone disorder [Unknown]
  - Impaired healing [Unknown]
  - Swelling [Unknown]
  - Deformity [Unknown]
  - Pain [Unknown]
  - Hypophagia [Unknown]
  - Emotional distress [Unknown]
  - Anxiety [Unknown]
  - Discomfort [Unknown]
  - Pain in jaw [Unknown]
  - Decreased interest [Unknown]
  - Osteomyelitis [Unknown]
  - Skin reaction [Unknown]
  - Rib fracture [Unknown]
  - Anaemia [Unknown]
  - Fall [Unknown]
  - Clavicle fracture [Unknown]
  - Confusional state [Unknown]
  - Hallucination [Unknown]
  - Cellulitis [Unknown]
  - Abscess [Unknown]
  - Cholelithiasis [Unknown]
  - Abdominal pain [Unknown]
  - Nausea [Unknown]
  - Breast pain [Unknown]
  - Sinusitis [Unknown]
  - Tendonitis [Unknown]
  - Blood pressure increased [Unknown]
  - Vulval ulceration [Unknown]
  - Rash [Unknown]
  - Pelvic pain [Unknown]
  - Abdominal pain lower [Unknown]
  - Dyspepsia [Unknown]
  - Upper limb fracture [Unknown]
  - Supraventricular tachycardia [Unknown]
  - Insomnia [Unknown]
  - Hypertrophy [Unknown]
  - Mucosal inflammation [Unknown]
  - Phlebolith [Unknown]
  - Splenic granuloma [Unknown]
  - Osteosclerosis [Unknown]
  - Depression [Unknown]
  - Stomatitis [Unknown]
  - Bronchitis [Unknown]
  - Pneumonia [Unknown]
  - Facial pain [Unknown]
  - Actinomycosis [Unknown]
  - Venous lake [Unknown]
  - Pleural effusion [Unknown]
  - Pulmonary fibrosis [Unknown]
  - Atelectasis [Unknown]
  - Escherichia urinary tract infection [Unknown]
  - Hypotension [Unknown]
  - Osteolysis [Unknown]
  - Essential hypertension [Unknown]
  - Vulvovaginal dryness [Unknown]
  - Bone marrow failure [Unknown]
  - Angioedema [Unknown]
  - Urticaria [Unknown]
  - Face oedema [Unknown]
  - Thrombocytopenia [Unknown]
  - Pancytopenia [Unknown]
  - Epistaxis [Unknown]
  - Dermatitis atopic [Unknown]
  - Neuropathy peripheral [Unknown]
  - Sepsis [Unknown]
  - Upper respiratory tract infection [Unknown]
  - Bundle branch block left [Unknown]
  - Hypocalcaemia [Unknown]
  - Chest pain [Unknown]
  - Hypertension [Unknown]
  - Orthostatic hypotension [Unknown]
  - Bone lesion [Unknown]
  - Spinal compression fracture [Unknown]
  - Cardiomegaly [Unknown]
  - Gastroenteritis [Unknown]
  - Spinal osteoarthritis [Unknown]
  - Arrhythmia [Unknown]
  - Mitral valve incompetence [Unknown]
  - Impaired gastric emptying [Unknown]
  - Oesophagitis [Unknown]
  - Syncope [Unknown]
  - Dehydration [Unknown]
  - Chronic obstructive pulmonary disease [Unknown]
  - Ventricular hypokinesia [Unknown]
  - Ventricular dysfunction [Unknown]
  - Pericardial effusion [Unknown]
  - Autonomic nervous system imbalance [Unknown]
  - Gastrointestinal motility disorder [Unknown]
  - Dyspnoea [Unknown]
  - Alopecia [Unknown]
  - Hypomagnesaemia [Unknown]
  - Hypokalaemia [Unknown]
